FAERS Safety Report 4611085-1 (Version None)
Quarter: 2005Q1

REPORT INFORMATION
  Report Type: 
  Country: None (occurrence: None)
  Receive Date: 20050316
  Receipt Date: 20050316
  Transmission Date: 20050727
  Serious: Yes (Death, Life-Threatening, Hospitalization, Other)
  Sender: FDA-Public Use
  Company Number: None

PATIENT
  Sex: Female

DRUGS (3)
  1. CORICIDIN [Suspect]
     Dosage: ORAL
     Route: 048
  2. ETHANOL [Suspect]
     Dosage: UNKNOWN
  3. MORPHINE SULFATE [Suspect]
     Dosage: UNKNOWN

REACTIONS (12)
  - CARDIAC ARREST [None]
  - COMA [None]
  - CONVULSION [None]
  - DISSEMINATED INTRAVASCULAR COAGULATION [None]
  - DYSPNOEA [None]
  - HEPATIC FAILURE [None]
  - HYPOTENSION [None]
  - LEFT VENTRICULAR FAILURE [None]
  - MENINGITIS BACTERIAL [None]
  - MULTIPLE DRUG OVERDOSE [None]
  - RENAL FAILURE [None]
  - SHOCK [None]
